FAERS Safety Report 6559936-8 (Version None)
Quarter: 2010Q1

REPORT INFORMATION
  Report Type: 
  Country: None (occurrence: None)
  Receive Date: 20100129
  Receipt Date: 20090915
  Transmission Date: 20100710
  Serious: No
  Sender: FDA-Public Use
  Company Number: US-ABBOTT-09P-163-0597987-00

PATIENT
  Sex: Female
  Weight: 61.744 kg

DRUGS (5)
  1. HUMIRA [Suspect]
     Indication: CROHN'S DISEASE
     Dosage: HELD FOR SIX WEEKS
     Route: 058
     Dates: start: 20080101, end: 20090101
  2. HUMIRA [Suspect]
     Indication: ANKYLOSING SPONDYLITIS
     Route: 058
     Dates: start: 20090101
  3. MULTI-VITAMIN [Concomitant]
     Indication: VITAMIN SUPPLEMENTATION
     Dates: end: 20090901
  4. IRON [Concomitant]
     Indication: MINERAL SUPPLEMENTATION
     Dates: end: 20090901
  5. CALCIUM [Concomitant]
     Indication: MINERAL SUPPLEMENTATION
     Dates: end: 20090901

REACTIONS (4)
  - GENITAL ERYTHEMA [None]
  - OEDEMA GENITAL [None]
  - PRURITUS [None]
  - RASH [None]
